FAERS Safety Report 6068697-0 (Version None)
Quarter: 2009Q1

REPORT INFORMATION
  Report Type: 
  Country: None (occurrence: None)
  Receive Date: 20090203
  Receipt Date: 20090120
  Transmission Date: 20090719
  Serious: Yes (Death, Life-Threatening, Hospitalization)
  Sender: FDA-Public Use
  Company Number: 2009000204

PATIENT
  Age: 80 Year
  Sex: Female

DRUGS (7)
  1. TARCEVA [Suspect]
     Indication: LUNG CANCER METASTATIC
     Dosage: (150 MG, QD), ORAL
     Route: 048
     Dates: start: 20081226, end: 20090106
  2. DEXTROMETHORPHAN HYDROBROMIDE [Concomitant]
  3. THEOPHYLLINE [Concomitant]
  4. BISACODYL (BISACODYL) [Concomitant]
  5. TRAMADOL HCL [Concomitant]
  6. CLOPIDOGREL [Concomitant]
  7. VALSARTAN [Concomitant]

REACTIONS (9)
  - BACK PAIN [None]
  - EPISTAXIS [None]
  - MOUTH HAEMORRHAGE [None]
  - MOUTH ULCERATION [None]
  - OROPHARYNGEAL BLISTERING [None]
  - PNEUMONIA [None]
  - PRODUCTIVE COUGH [None]
  - PULMONARY HAEMORRHAGE [None]
  - RESPIRATORY DISTRESS [None]
